FAERS Safety Report 6371152-1 (Version None)
Quarter: 2009Q3

REPORT INFORMATION
  Report Type: 
  Country: None (occurrence: None)
  Receive Date: 20090918
  Receipt Date: 20090907
  Transmission Date: 20100115
  Serious: Yes (Life-Threatening, Other)
  Sender: FDA-Public Use
  Company Number: A-JP2007-17654

PATIENT
  Age: 69 Year
  Sex: Male
  Weight: 61.2 kg

DRUGS (14)
  1. TRACLEER [Suspect]
     Indication: PULMONARY HYPERTENSION
     Dosage: 62.5 MG, BID, ORAL
     Route: 048
     Dates: start: 20070326, end: 20070330
  2. AZOSEMIDE (AZOSEMIDE) [Concomitant]
  3. ASPIRIN [Concomitant]
  4. FUROSEMIDE [Concomitant]
  5. CANDESARTAN CILEXETIL [Concomitant]
  6. SPIRONOLACTONE [Concomitant]
  7. ALLOPURINOL [Concomitant]
  8. PIMOBENDAN (PIMOBENDAN) [Concomitant]
  9. WARFARIN PORASSIUM (WARFARIN POTASSIUM) [Concomitant]
  10. LANSOPRAZOLE [Concomitant]
  11. REBAMIPIDE (REBAMIPIDE) [Concomitant]
  12. URSODIOL [Concomitant]
  13. RILMAZAFONE HYDROCHLORIDE (RILMAZAFONE HYDROCHLORIDE) [Concomitant]
  14. OXYGEN (OXYGEN) [Concomitant]

REACTIONS (3)
  - LOW CARDIAC OUTPUT SYNDROME [None]
  - OFF LABEL USE [None]
  - RENAL IMPAIRMENT [None]
